FAERS Safety Report 12740063 (Version 2)
Quarter: 2016Q4

REPORT INFORMATION
  Report Type: Report from Study
  Country: ES (occurrence: ES)
  Receive Date: 20160913
  Receipt Date: 20161129
  Transmission Date: 20170207
  Serious: Yes (Life-Threatening, Hospitalization)
  Sender: FDA-Public Use
  Company Number: ES-PFIZER INC-2016424020

PATIENT
  Age: 71 Year
  Sex: Male

DRUGS (4)
  1. ORFIDAL [Interacting]
     Active Substance: LORAZEPAM
     Dosage: 1 MG, 1X/DAY
     Route: 048
     Dates: start: 2006, end: 20141230
  2. LYRICA [Concomitant]
     Active Substance: PREGABALIN
     Dosage: 150 MG, 1X/DAY
     Route: 048
     Dates: start: 201006, end: 20141230
  3. FENTANYL. [Suspect]
     Active Substance: FENTANYL
     Indication: MEDICATION ERROR
     Dosage: 1 DF, 1X/DAY
     Route: 062
     Dates: start: 20141229, end: 20141230
  4. LORMETAZEPAM [Interacting]
     Active Substance: LORMETAZEPAM
     Dosage: 1 DF, 1X/DAY
     Route: 048
     Dates: start: 2007, end: 20141230

REACTIONS (3)
  - Respiratory depression [Recovered/Resolved]
  - Medication error [Recovered/Resolved]
  - Drug interaction [Recovered/Resolved]

NARRATIVE: CASE EVENT DATE: 20141229
